FAERS Safety Report 4951652-9 (Version None)
Quarter: 2006Q1

REPORT INFORMATION
  Report Type: 
  Country: None (occurrence: None)
  Receive Date: 20060320
  Receipt Date: 20060303
  Transmission Date: 20060701
  Serious: Yes (Hospitalization)
  Sender: FDA-Public Use
  Company Number: 2006-00501

PATIENT
  Age: 77 Year
  Sex: Male
  Weight: 78 kg

DRUGS (6)
  1. VELCADE [Suspect]
     Indication: MANTLE CELL LYMPHOMA
     Dosage: 1.30 MG/M2, INTRAVENOUS
     Route: 042
     Dates: start: 20060215, end: 20060223
  2. NEXIUM [Concomitant]
  3. TRANSIPEG (MACROGOL) [Concomitant]
  4. MARCUMAR [Concomitant]
  5. METOPROLOL SUCCINATE [Concomitant]
  6. FRAGMIN [Concomitant]

REACTIONS (4)
  - ABDOMINAL PAIN [None]
  - MALIGNANT NEOPLASM PROGRESSION [None]
  - MANTLE CELL LYMPHOMA [None]
  - URETERIC OBSTRUCTION [None]
